FAERS Safety Report 7350050-0 (Version None)
Quarter: 2011Q1

REPORT INFORMATION
  Report Type: 
  Country: None (occurrence: None)
  Receive Date: 20110314
  Receipt Date: 20110302
  Transmission Date: 20110831
  Serious: Yes (Hospitalization)
  Sender: FDA-Public Use
  Company Number: US-ROCHE-764522

PATIENT
  Sex: Male

DRUGS (3)
  1. AVASTIN [Suspect]
     Route: 065
  2. IRINOTECAN [Concomitant]
  3. CAPECITABINE [Suspect]
     Dosage: INDICATION: WITH LIVER METASTASIS
     Route: 048
     Dates: start: 20110101

REACTIONS (1)
  - VOLVULUS [None]
